FAERS Safety Report 9614491 (Version 2)
Quarter: 2013Q4

REPORT INFORMATION
  Report Type: Spontaneous
  Country: BR (occurrence: BR)
  Receive Date: 20131011
  Receipt Date: 20131014
  Transmission Date: 20140711
  Serious: Yes (Other)
  Sender: FDA-Public Use
  Company Number: BR-PFIZER INC-2013290224

PATIENT
  Age: 51 Year
  Sex: Female
  Weight: 98 kg

DRUGS (6)
  1. LYRICA [Suspect]
     Dosage: 75 MG, UNK
  2. EFEXOR XR [Suspect]
     Dosage: 75 MG, UNK
  3. TRAMADOL [Concomitant]
     Dosage: UNK
  4. CITALOPRAM [Concomitant]
     Dosage: UNK
  5. RIVOTRIL [Concomitant]
     Dosage: UNK
  6. DONAREN [Concomitant]
     Dosage: UNK

REACTIONS (3)
  - Depression [Unknown]
  - Hepatic steatosis [Unknown]
  - Cholelithiasis [Unknown]
